FAERS Safety Report 5785592-2 (Version None)
Quarter: 2008Q2

REPORT INFORMATION
  Report Type: 
  Country: None (occurrence: None)
  Receive Date: 20080605
  Receipt Date: 20080220
  Transmission Date: 20081010
  Serious: No
  Sender: FDA-Public Use
  Company Number: A0710765A

PATIENT
  Age: 32 Year
  Sex: Female

DRUGS (2)
  1. ALLI [Suspect]
     Dates: start: 20080118
  2. TYLENOL [Concomitant]

REACTIONS (3)
  - ABDOMINAL DISTENSION [None]
  - ABNORMAL FAECES [None]
  - CONSTIPATION [None]
